FAERS Safety Report 5125077-X (Version None)
Quarter: 2006Q4

REPORT INFORMATION
  Report Type: 
  Country: None (occurrence: None)
  Receive Date: 20061011
  Receipt Date: 20061004
  Transmission Date: 20070319
  Serious: Yes (Other)
  Sender: FDA-Public Use
  Company Number: US-BRISTOL-MYERS SQUIBB COMPANY-13530902

PATIENT
  Age: 9 Decade
  Sex: Female

DRUGS (1)
  1. TEQUIN [Suspect]
     Indication: TOOTH ABSCESS
     Dates: start: 20060929

REACTIONS (1)
  - BLOOD GLUCOSE DECREASED [None]
